FAERS Safety Report 15715330 (Version 7)
Quarter: 2019Q2

REPORT INFORMATION
  Report Type: Spontaneous
  Country: CH (occurrence: CH)
  Receive Date: 20181212
  Receipt Date: 20190523
  Transmission Date: 20190711
  Serious: Yes (Hospitalization, Other)
  Sender: FDA-Public Use
  Company Number: CH-PFIZER INC-2018505888

PATIENT
  Age: 70 Year
  Sex: Female
  Weight: 48 kg

DRUGS (33)
  1. CEFUROXIM FRESENIUS [Suspect]
     Active Substance: CEFUROXIME
     Indication: ANTIBIOTIC PROPHYLAXIS
     Dosage: 1.5 GRAM
     Route: 041
     Dates: start: 20181012, end: 20181012
  2. DAFALGAN ODIS [Suspect]
     Active Substance: ACETAMINOPHEN
     Indication: POSTOPERATIVE ANALGESIA
     Dosage: ZUVOR PARACETAMOL (PERFALGAN ) 1G/100 ML I.V. AM 11.10.2018 UND 15.10.2018,
     Route: 048
     Dates: start: 20181015, end: 20181021
  3. PASPERTIN [METOCLOPRAMIDE HYDROCHLORIDE] [Suspect]
     Active Substance: METOCLOPRAMIDE HYDROCHLORIDE
     Dosage: 10 MILLIGRAM, Q8HR
     Route: 041
     Dates: start: 20181014, end: 20181016
  4. PASPERTIN [METOCLOPRAMIDE HYDROCHLORIDE] [Suspect]
     Active Substance: METOCLOPRAMIDE HYDROCHLORIDE
     Dosage: UNK UNK, Q8HR
     Route: 048
     Dates: start: 20181017, end: 20181019
  5. TOREM [TORASEMIDE] [Suspect]
     Active Substance: TORSEMIDE
     Dosage: 10 MG, 1X/DAY
     Dates: start: 20181018, end: 20181021
  6. PHENYLEPHRIN SINTETICA [Concomitant]
     Active Substance: PHENYLEPHRINE HYDROCHLORIDE
     Dosage: AS NECESSARY
     Dates: start: 20181012, end: 20181012
  7. NORADRENALIN [NOREPINEPHRINE BITARTRATE] [Concomitant]
     Active Substance: NOREPINEPHRINE BITARTRATE
     Dosage: 5UG/MIN
     Route: 041
     Dates: start: 20181012, end: 20181012
  8. PANTOZOL [Suspect]
     Active Substance: PANTOPRAZOLE SODIUM
     Dosage: 40 MG, 1X/DAY (1-0-0)
     Route: 048
     Dates: start: 20181015, end: 20181115
  9. TRIATEC (RAMIPRIL) [Suspect]
     Active Substance: RAMIPRIL
     Dosage: 5 MG, 1X/DAY (1-0-0)
     Route: 048
     Dates: start: 201811, end: 20181114
  10. PASPERTIN [METOCLOPRAMIDE HYDROCHLORIDE] [Suspect]
     Active Substance: METOCLOPRAMIDE HYDROCHLORIDE
     Indication: PROCEDURAL NAUSEA
     Dosage: 10 MILLIGRAM, QD
     Route: 041
     Dates: start: 20181011, end: 20181012
  11. ADALAT [Suspect]
     Active Substance: NIFEDIPINE
     Dosage: 20 MILLIGRAM
     Route: 048
     Dates: start: 20181018, end: 20181018
  12. NITRODERM [Suspect]
     Active Substance: NITROGLYCERIN
     Dosage: 10 MG, DAILY (10 MG/24 H)
     Route: 062
     Dates: start: 20181016, end: 20181021
  13. PERFALGAN [Suspect]
     Active Substance: ACETAMINOPHEN
     Dosage: 1G/100 ML
     Route: 042
     Dates: start: 20181015, end: 20181015
  14. DAFALGAN ODIS [Suspect]
     Active Substance: ACETAMINOPHEN
     Dosage: 1000 MILLIGRAM
     Route: 065
     Dates: start: 20181022
  15. ADALAT [Suspect]
     Active Substance: NIFEDIPINE
     Dosage: 20 MG, AS NEEDED (AS NECESSARY)
     Route: 048
     Dates: start: 20181013, end: 20181018
  16. HEPARIN [Suspect]
     Active Substance: HEPARIN SODIUM
     Indication: THROMBOSIS PROPHYLAXIS
     Dosage: 25000 IU, DAILY
  17. ESMERON [Concomitant]
     Active Substance: ROCURONIUM BROMIDE
     Dosage: 20 MG, UNK (IN TOTAL)
     Dates: start: 20181012, end: 20181012
  18. MAGNESIUMSULFAT BICHSEL [Concomitant]
     Active Substance: MAGNESIUM SULFATE
     Dosage: 2 GRAM, IN TOTAL
     Dates: start: 20181012, end: 20181012
  19. FRAGMIN [Suspect]
     Active Substance: DALTEPARIN SODIUM
     Indication: THROMBOSIS PROPHYLAXIS
     Dosage: 5000 IU, 1X/DAY
     Route: 058
     Dates: start: 20181014, end: 20181020
  20. FENTANYL SINTETICA [Concomitant]
     Active Substance: FENTANYL CITRATE
     Dosage: UNK
     Route: 008
     Dates: start: 20181012, end: 20181017
  21. DAFALGAN ODIS [Suspect]
     Active Substance: ACETAMINOPHEN
     Dosage: 1 DF, 1X/DAY
     Route: 054
     Dates: start: 20181106, end: 20181107
  22. NOVALGIN (METAMIZOLE SODIUM) [Suspect]
     Active Substance: METAMIZOLE SODIUM
     Indication: POSTOPERATIVE ANALGESIA
     Dosage: 1000 MG, 4X/DAY (EVERY 6 HOURS)
     Route: 041
     Dates: start: 20181012, end: 20181014
  23. METRONIDAZOLE VIFOR MEDICAL [Concomitant]
     Active Substance: METRONIDAZOLE
     Indication: ANTIBIOTIC PROPHYLAXIS
     Dosage: 500 MG, SINGLE
     Route: 041
     Dates: start: 20181012, end: 20181012
  24. CEFUROXIM FRESENIUS [Suspect]
     Active Substance: CEFUROXIME
     Indication: ANTIBIOTIC PROPHYLAXIS
  25. NOVALGIN (METAMIZOLE SODIUM) [Suspect]
     Active Substance: METAMIZOLE SODIUM
     Dosage: 40 GTT, AS NEEDED (AS NECESSARY)
     Route: 048
     Dates: start: 20181021
  26. REMIFENTANIL FRESENIUS [Concomitant]
     Active Substance: REMIFENTANIL
     Dosage: UNK
     Dates: start: 20181012, end: 20181012
  27. PERFALGAN [Suspect]
     Active Substance: ACETAMINOPHEN
     Dosage: 1G/100 ML
     Route: 042
     Dates: start: 20181011, end: 20181011
  28. ESMERON [Concomitant]
     Active Substance: ROCURONIUM BROMIDE
     Indication: INDUCTION AND MAINTENANCE OF ANAESTHESIA
     Dosage: 50 MG, UNK (IN TOTAL)
     Dates: start: 20181012, end: 20181012
  29. PROPOFOL MCT FRESENIUS [Concomitant]
     Dosage: UNK
     Route: 041
     Dates: start: 20181012, end: 20181012
  30. NOVALGIN (METAMIZOLE SODIUM) [Suspect]
     Active Substance: METAMIZOLE SODIUM
     Dosage: 40 GTT, UNK (ALSO REPORTED AS ^ 500 MG/ML 4X40) (EVERY 6 HOURS)
     Route: 048
     Dates: start: 20181014, end: 20181021
  31. ADALAT [Suspect]
     Active Substance: NIFEDIPINE
     Dosage: 10 MILLIGRAM
     Route: 048
     Dates: start: 20181016, end: 20181016
  32. MORPHINE HYDROCHLORIDE [Concomitant]
     Active Substance: MORPHINE HYDROCHLORIDE
     Dosage: AS NECESSARY
     Dates: start: 20181012, end: 20181012
  33. BUPIVACAIN SINTETICA [Concomitant]
     Active Substance: BUPIVACAINE HYDROCHLORIDE
     Dosage: UNK
     Route: 008
     Dates: start: 20181012, end: 20181017

REACTIONS (2)
  - Drug-induced liver injury [Recovered/Resolved]
  - Prescribed overdose [Recovered/Resolved]

NARRATIVE: CASE EVENT DATE: 20181015
